FAERS Safety Report 18114135 (Version 1)
Quarter: 2020Q3

REPORT INFORMATION
  Report Type: Spontaneous
  Country: GB (occurrence: GB)
  Receive Date: 20200805
  Receipt Date: 20200805
  Transmission Date: 20201103
  Serious: Yes (Other)
  Sender: FDA-Public Use
  Company Number: GB-ACCORD-193990

PATIENT
  Age: 33 Year
  Sex: Male
  Weight: 82 kg

DRUGS (7)
  1. ESCITALOPRAM [Suspect]
     Active Substance: ESCITALOPRAM OXALATE
     Indication: MAJOR DEPRESSION
     Route: 048
  2. VENLAFAXINE/VENLAFAXINE HYDROCHLORIDE [Interacting]
     Active Substance: VENLAFAXINE HYDROCHLORIDE
     Indication: DEPRESSION
     Route: 048
  3. CAPIMUNE [Interacting]
     Active Substance: CYCLOSPORINE
     Indication: ECZEMA
     Dosage: TITRATED UP TO 200 MG TWICE DAILY AT MAXIMUM DOSE.
     Route: 048
     Dates: start: 20200108, end: 20200714
  4. CAPIMUNE [Suspect]
     Active Substance: CYCLOSPORINE
     Indication: ECZEMA
     Route: 048
  5. FLUCLOXACILLIN [Concomitant]
     Active Substance: FLUCLOXACILLIN
  6. PARACETAMOL [Concomitant]
     Active Substance: ACETAMINOPHEN
  7. IBUPROFEN. [Concomitant]
     Active Substance: IBUPROFEN

REACTIONS (2)
  - Therapeutic product effect decreased [Unknown]
  - Inhibitory drug interaction [Unknown]

NARRATIVE: CASE EVENT DATE: 20200108
